FAERS Safety Report 12165312 (Version 1)
Quarter: 2016Q1

REPORT INFORMATION
  Report Type: Spontaneous
  Country: IN (occurrence: IN)
  Receive Date: 20160309
  Receipt Date: 20160309
  Transmission Date: 20160526
  Serious: Yes (Other)
  Sender: FDA-Public Use
  Company Number: IN-PFIZER INC-2016137521

PATIENT
  Age: 58 Year
  Sex: Male

DRUGS (1)
  1. PHENYTOIN. [Suspect]
     Active Substance: PHENYTOIN
     Indication: SEIZURE
     Dosage: 100 MG, 2X/DAY

REACTIONS (4)
  - Anticonvulsant drug level above therapeutic [Unknown]
  - Toxicity to various agents [Unknown]
  - Fall [Recovering/Resolving]
  - Altered state of consciousness [Recovering/Resolving]
